FAERS Safety Report 22796779 (Version 2)
Quarter: 2024Q1

REPORT INFORMATION
  Report Type: Other
  Country: US (occurrence: None)
  Receive Date: 20230808
  Receipt Date: 20240115
  Transmission Date: 20240409
  Serious: Yes (Other)
  Sender: FDA-Public Use
  Company Number: US-ROCHE-3400067

PATIENT

DRUGS (4)
  1. OBINUTUZUMAB [Suspect]
     Active Substance: OBINUTUZUMAB
     Indication: Follicular lymphoma refractory
     Dosage: ON DAYS 1, 8, AND 15 OF CYCLE 1, AND DAY 1 OF CYCLES 2-6, AND ON EVERY SECOND CYCLE OF CYCLES 8-30
     Route: 042
  2. PARSACLISIB [Suspect]
     Active Substance: PARSACLISIB
     Indication: Follicular lymphoma refractory
     Route: 048
  3. PARSACLISIB [Suspect]
     Active Substance: PARSACLISIB
     Route: 065
  4. BENDAMUSTINE [Suspect]
     Active Substance: BENDAMUSTINE
     Indication: Follicular lymphoma refractory
     Dosage: ON DAYS 1 AND 2 OF CYCLES 1-6
     Route: 042

REACTIONS (30)
  - Pyrexia [Unknown]
  - Neutropenia [Unknown]
  - Thrombocytopenia [Unknown]
  - Alanine aminotransferase increased [Unknown]
  - Aspartate aminotransferase increased [Unknown]
  - Tonsil cancer [Unknown]
  - White blood cell count decreased [Unknown]
  - Lymphocyte count decreased [Unknown]
  - Neutrophil count abnormal [Unknown]
  - Platelet disorder [Unknown]
  - Blood potassium decreased [Unknown]
  - Blood cholesterol abnormal [Unknown]
  - Blood creatinine abnormal [Unknown]
  - Blood alkaline phosphatase abnormal [Unknown]
  - Blood phosphorus decreased [Unknown]
  - Blood bilirubin abnormal [Unknown]
  - White blood cell count increased [Unknown]
  - Haemoglobin decreased [Unknown]
  - Haemoglobin increased [Unknown]
  - Fatigue [Unknown]
  - Blood calcium decreased [Unknown]
  - Lymphocyte count increased [Unknown]
  - Cytomegalovirus colitis [Unknown]
  - Blood albumin abnormal [Unknown]
  - Blood glucose increased [Unknown]
  - Blood sodium decreased [Unknown]
  - Blood sodium increased [Unknown]
  - Blood potassium increased [Unknown]
  - Blood calcium increased [Unknown]
  - Blood glucose decreased [Unknown]
